FAERS Safety Report 14299320 (Version 1)
Quarter: 2017Q4

REPORT INFORMATION
  Report Type: Spontaneous
  Country: TW (occurrence: TW)
  Receive Date: 20171219
  Receipt Date: 20171219
  Transmission Date: 20180321
  Serious: Yes (Other)
  Sender: FDA-Public Use
  Company Number: TW-INGENUS PHARMACEUTICALS NJ, LLC-ING201712-000672

PATIENT
  Age: 49 Year
  Sex: Male

DRUGS (2)
  1. ATORVASTATIN [Suspect]
     Active Substance: ATORVASTATIN
  2. CARISOPRODOL AND ASPIRIN [Suspect]
     Active Substance: ASPIRIN\CARISOPRODOL

REACTIONS (4)
  - Subclavian steal syndrome [Unknown]
  - Withdrawal syndrome [Recovered/Resolved]
  - Arterial occlusive disease [Recovered/Resolved]
  - Cerebral infarction [Unknown]
